FAERS Safety Report 19835076 (Version 1)
Quarter: 2021Q3

REPORT INFORMATION
  Report Type: Spontaneous
  Country: DE (occurrence: DE)
  Receive Date: 20210914
  Receipt Date: 20210914
  Transmission Date: 20211014
  Serious: Yes (Other)
  Sender: FDA-Public Use
  Company Number: DE-TAKEDA-2021TUS029718

PATIENT
  Age: 61 Year
  Sex: Female

DRUGS (3)
  1. HUMAN NORMAL IMMUNOGLOBULIN [Suspect]
     Active Substance: HUMAN IMMUNOGLOBULIN G
     Indication: IMMUNE THROMBOCYTOPENIA
     Dosage: 1 GRAM PER KILOGRAM
     Route: 042
  2. DEXAMETHASONE. [Suspect]
     Active Substance: DEXAMETHASONE
     Indication: IMMUNE THROMBOCYTOPENIA
     Dosage: UNK
     Route: 065
  3. ARGATROBAN. [Concomitant]
     Active Substance: ARGATROBAN
     Dosage: UNK
     Route: 065

REACTIONS (2)
  - Off label use [Unknown]
  - Peripheral artery thrombosis [Recovering/Resolving]
